FAERS Safety Report 7385358 (Version 4)
Quarter: 2013Q1

REPORT INFORMATION
  Report Type: Spontaneous
  Country: US (occurrence: US)
  Receive Date: 20100512
  Receipt Date: 20130128
  Transmission Date: 20140127
  Serious: Yes (Hospitalization, Other)
  Sender: FDA-Public Use
  Company Number: US-ELI_LILLY_AND_COMPANY-US201005000631

PATIENT
  Sex: Male
  Weight: 129.25 kg

DRUGS (12)
  1. BYETTA [Suspect]
     Indication: DIABETES MELLITUS
     Dosage: 5 UG, BID
     Route: 058
     Dates: start: 20060317, end: 20060820
  2. GLUCOTROL [Concomitant]
     Indication: DIABETES MELLITUS
     Route: 048
  3. ACTOS [Concomitant]
     Dosage: 45 MG, QD
     Route: 048
  4. GLIPIZIDE [Concomitant]
     Indication: DIABETES MELLITUS
     Dosage: 5 MG, BID
     Route: 048
  5. LANTUS [Concomitant]
     Indication: DIABETES MELLITUS
     Dosage: UNK
  6. TYLENOL /00020001/ [Concomitant]
  7. ANTIBIOTICS [Concomitant]
  8. LABETALOL [Concomitant]
  9. ATENOLOL [Concomitant]
     Dosage: 150 MG, EACH MORNING
  10. GLUCOPHAGE [Concomitant]
     Dosage: 1000 MG, BID
     Route: 048
  11. LISINOPRIL [Concomitant]
     Dosage: 20 MG, BID
  12. HYDROCHLOROTHIAZIDE [Concomitant]
     Dosage: 25 MG, QD
     Route: 048

REACTIONS (7)
  - Cardiac failure congestive [Not Recovered/Not Resolved]
  - Myocardial infarction [Unknown]
  - Blood glucose increased [Unknown]
  - Pancreatitis [Unknown]
  - Renal failure [Unknown]
  - Renal failure acute [Not Recovered/Not Resolved]
  - Off label use [Recovered/Resolved]
